FAERS Safety Report 7432928-2 (Version None)
Quarter: 2011Q2

REPORT INFORMATION
  Report Type: 
  Country: None (occurrence: None)
  Receive Date: 20110422
  Receipt Date: 20110419
  Transmission Date: 20111010
  Serious: No
  Sender: FDA-Public Use
  Company Number: US-PFIZER INC-2011067413

PATIENT
  Sex: Female
  Weight: 55.329 kg

DRUGS (6)
  1. ZOLOFT [Suspect]
     Indication: ANXIETY
  2. SUBUTEX [Concomitant]
     Indication: DRUG DEPENDENCE
     Dosage: UNK
  3. ZOLOFT [Suspect]
     Indication: DEPRESSION
     Dosage: 200 MG, DAILY
     Route: 048
     Dates: start: 20110103
  4. TRAZODONE [Concomitant]
     Indication: SLEEP DISORDER
     Dosage: 150-200MG, 1X/DAY, AT BEDTIME
  5. GEODON [Suspect]
  6. SUBOXONE [Concomitant]
     Dosage: 8 MG DAILY

REACTIONS (3)
  - DRUG SCREEN POSITIVE [None]
  - PYREXIA [None]
  - HEART RATE INCREASED [None]
